FAERS Safety Report 5627471-7 (Version None)
Quarter: 2008Q1

REPORT INFORMATION
  Report Type: 
  Country: None (occurrence: None)
  Receive Date: 20080214
  Receipt Date: 20080214
  Transmission Date: 20080703
  Serious: Yes (Hospitalization)
  Sender: FDA-Public Use
  Company Number: None

PATIENT
  Age: 26 Year
  Sex: Female
  Weight: 74.8435 kg

DRUGS (1)
  1. YASMIN [Suspect]
     Indication: CONTRACEPTION
     Dosage: TOOK IT FOR 3MONTHS
     Dates: start: 20050901, end: 20060110

REACTIONS (3)
  - FATIGUE [None]
  - HORMONE LEVEL ABNORMAL [None]
  - PALPITATIONS [None]
